FAERS Safety Report 25286982 (Version 1)
Quarter: 2025Q2

REPORT INFORMATION
  Report Type: Spontaneous
  Country: US (occurrence: None)
  Receive Date: 20250508
  Receipt Date: 20250508
  Transmission Date: 20250716
  Serious: No
  Sender: FDA-CTU
  Company Number: None

PATIENT
  Age: 75 Year
  Sex: Female

DRUGS (1)
  1. TEZSPIRE [Suspect]
     Active Substance: TEZEPELUMAB-EKKO
     Indication: Asthma
     Dates: start: 20241219, end: 20250508

REACTIONS (3)
  - Back pain [None]
  - Haemoptysis [None]
  - Sputum discoloured [None]

NARRATIVE: CASE EVENT DATE: 20250410
